FAERS Safety Report 8048786-1 (Version None)
Quarter: 2012Q1

REPORT INFORMATION
  Report Type: 
  Country: None (occurrence: None)
  Receive Date: 20120117
  Receipt Date: 20120109
  Transmission Date: 20120608
  Serious: Yes (Congenital Anomaly)
  Sender: FDA-Public Use
  Company Number: US-UCBSA-049418

PATIENT
  Age: 24 Hour
  Sex: Female
  Weight: 4 kg

DRUGS (2)
  1. KEPPRA [Suspect]
     Indication: EPILEPSY
     Dosage: 500
     Route: 064
     Dates: start: 20030801, end: 20040124
  2. KEPPRA [Suspect]
     Dosage: 450
     Route: 064
     Dates: start: 20030401, end: 20030801

REACTIONS (4)
  - POSTMATURE BABY [None]
  - CATARACT CONGENITAL [None]
  - ANAEMIA [None]
  - FOETAL EXPOSURE DURING PREGNANCY [None]
